FAERS Safety Report 10687665 (Version 2)
Quarter: 2015Q2

REPORT INFORMATION
  Report Type: Report from Study
  Country: US (occurrence: US)
  Receive Date: 20150102
  Receipt Date: 20150403
  Transmission Date: 20150821
  Serious: Yes (Death, Other)
  Sender: FDA-Public Use
  Company Number: US-ASTELLAS-2014US021583

PATIENT
  Sex: Female

DRUGS (28)
  1. AVASTIN [Suspect]
     Active Substance: BEVACIZUMAB
     Indication: METASTATIC RENAL CELL CARCINOMA
     Route: 065
  2. INTERFERON ALFA-2A [Suspect]
     Active Substance: INTERFERON ALFA-2A
     Indication: METASTATIC RENAL CELL CARCINOMA
  3. ATENOLOL. [Concomitant]
     Active Substance: ATENOLOL
     Indication: PRODUCT USED FOR UNKNOWN INDICATION
     Dosage: UNK UNK, UNKNOWN FREQ.
     Route: 065
  4. BENADRYL [Concomitant]
     Active Substance: DIPHENHYDRAMINE HYDROCHLORIDE
     Indication: PRODUCT USED FOR UNKNOWN INDICATION
     Dosage: 25 MG, UNK
     Route: 048
  5. GEMZAR [Concomitant]
     Active Substance: GEMCITABINE HYDROCHLORIDE
     Dosage: 900, OTHER
     Route: 065
  6. GRANISETRON [Concomitant]
     Active Substance: GRANISETRON
     Indication: PRODUCT USED FOR UNKNOWN INDICATION
     Dosage: UNK UNK, UNKNOWN FREQ.
     Route: 065
  7. TYLENOL [Concomitant]
     Active Substance: ACETAMINOPHEN
     Indication: PRODUCT USED FOR UNKNOWN INDICATION
     Route: 048
  8. ZOFRAN                             /00955301/ [Concomitant]
     Active Substance: ONDANSETRON HYDROCHLORIDE
     Indication: NAUSEA
     Route: 065
  9. ERLOTINIB [Suspect]
     Active Substance: ERLOTINIB
     Indication: MALIGNANT URINARY TRACT NEOPLASM
     Dosage: UNK, UNKNOWN FREQ.
     Route: 065
  10. ERLOTINIB [Suspect]
     Active Substance: ERLOTINIB
     Indication: METASTATIC RENAL CELL CARCINOMA
     Dosage: 100 MG, UNK
     Route: 065
  11. DEMEROL [Concomitant]
     Active Substance: MEPERIDINE HYDROCHLORIDE
     Indication: PRODUCT USED FOR UNKNOWN INDICATION
     Dosage: 35-50 MG, AS NEEDED
     Route: 042
  12. ANZEMET [Concomitant]
     Active Substance: DOLASETRON MESYLATE
     Indication: NAUSEA
     Dosage: 12.5 MG, EVERY 4 HOURS
     Route: 042
  13. AVASTIN [Suspect]
     Active Substance: BEVACIZUMAB
     Indication: MALIGNANT URINARY TRACT NEOPLASM
     Route: 065
     Dates: start: 20050106
  14. LIBRAX [Concomitant]
     Active Substance: CHLORDIAZEPOXIDE HYDROCHLORIDE\CLIDINIUM BROMIDE
     Indication: PRODUCT USED FOR UNKNOWN INDICATION
     Dosage: UNK UNK, UNKNOWN FREQ.
     Route: 065
  15. GEMZAR [Concomitant]
     Active Substance: GEMCITABINE HYDROCHLORIDE
     Indication: PRODUCT USED FOR UNKNOWN INDICATION
     Dosage: 1000, OTHER
     Route: 065
  16. VELBAN [Concomitant]
     Active Substance: VINBLASTINE SULFATE
     Indication: PRODUCT USED FOR UNKNOWN INDICATION
     Route: 042
  17. PREMARIN [Concomitant]
     Active Substance: ESTROGENS, CONJUGATED
     Indication: PRODUCT USED FOR UNKNOWN INDICATION
     Dosage: UNK UNK, UNKNOWN FREQ.
     Route: 065
  18. ACIPHEX [Concomitant]
     Active Substance: RABEPRAZOLE SODIUM
     Indication: PRODUCT USED FOR UNKNOWN INDICATION
     Dosage: UNK UNK, UNKNOWN FREQ.
     Route: 065
  19. MEDROL [Concomitant]
     Active Substance: METHYLPREDNISOLONE
     Indication: PRODUCT USED FOR UNKNOWN INDICATION
     Route: 065
  20. FLOXURIDINE. [Concomitant]
     Active Substance: FLOXURIDINE
     Indication: PRODUCT USED FOR UNKNOWN INDICATION
     Route: 042
  21. ANZEMET [Concomitant]
     Active Substance: DOLASETRON MESYLATE
     Indication: VOMITING
  22. ERLOTINIB [Suspect]
     Active Substance: ERLOTINIB
     Dosage: 25 MG, UNK
     Route: 065
  23. PROLEUKIN                          /01224601/ [Concomitant]
     Indication: PRODUCT USED FOR UNKNOWN INDICATION
     Dosage: 11.5, EVERY 8 HOURS
     Route: 042
  24. INTERFERON ALFA-2A [Suspect]
     Active Substance: INTERFERON ALFA-2A
     Indication: MALIGNANT URINARY TRACT NEOPLASM
     Dosage: UNK UNK, UNKNOWN FREQ.
     Route: 001
     Dates: start: 20050106, end: 20050315
  25. AMBIEN [Concomitant]
     Active Substance: ZOLPIDEM TARTRATE
     Indication: INSOMNIA
     Dosage: UNK UNK, UNKNOWN FREQ.
     Route: 065
  26. DOXEPIN [Concomitant]
     Active Substance: DOXEPIN
     Indication: PRODUCT USED FOR UNKNOWN INDICATION
     Dosage: 100 MG, EVERY 1 HOUR
     Route: 065
  27. THALIDOMIDE [Concomitant]
     Active Substance: THALIDOMIDE
     Indication: PRODUCT USED FOR UNKNOWN INDICATION
     Dosage: UNK UNK, UNKNOWN FREQ.
     Route: 065
  28. ZOMETA [Concomitant]
     Active Substance: ZOLEDRONIC ACID
     Indication: PRODUCT USED FOR UNKNOWN INDICATION
     Route: 065

REACTIONS (7)
  - Malignant neoplasm progression [Unknown]
  - Off label use [Unknown]
  - Abdominal pain lower [Unknown]
  - Bacteriuria [Unknown]
  - Drug intolerance [Unknown]
  - Fatigue [Unknown]
  - Death [Fatal]
